FAERS Safety Report 11303391 (Version 1)
Quarter: 2015Q3

REPORT INFORMATION
  Report Type: Spontaneous
  Country: US (occurrence: US)
  Receive Date: 20150723
  Receipt Date: 20150723
  Transmission Date: 20151125
  Serious: No
  Sender: FDA-Public Use
  Company Number: US-JNJFOC-20141205014

PATIENT
  Age: 24 Year
  Sex: Female
  Weight: 54.43 kg

DRUGS (5)
  1. ZYRTEC [Suspect]
     Active Substance: CETIRIZINE HYDROCHLORIDE
     Indication: NASOPHARYNGITIS
     Route: 048
     Dates: start: 20141127
  2. ADVIL ALLERGY SINUS [Concomitant]
     Active Substance: CHLORPHENIRAMINE MALEATE\IBUPROFEN\PSEUDOEPHEDRINE HYDROCHLORIDE
     Indication: NASOPHARYNGITIS
     Dosage: 2 PILLS EVERY FEW HOURS
     Route: 065
     Dates: start: 201411
  3. ZYRTEC [Suspect]
     Active Substance: CETIRIZINE HYDROCHLORIDE
     Indication: MULTIPLE ALLERGIES
     Route: 048
     Dates: start: 20141127
  4. ADVIL ALLERGY SINUS [Concomitant]
     Active Substance: CHLORPHENIRAMINE MALEATE\IBUPROFEN\PSEUDOEPHEDRINE HYDROCHLORIDE
     Indication: MULTIPLE ALLERGIES
     Dosage: 2 PILLS EVERY FEW HOURS
     Route: 065
     Dates: start: 201411
  5. ORTHO TRI CYCLEN [Concomitant]
     Active Substance: ETHINYL ESTRADIOL\NORGESTIMATE
     Indication: CONTRACEPTION
     Route: 065

REACTIONS (3)
  - Therapeutic response unexpected [Unknown]
  - Product use issue [Unknown]
  - Energy increased [Not Recovered/Not Resolved]

NARRATIVE: CASE EVENT DATE: 20141127
